FAERS Safety Report 8031049-8 (Version None)
Quarter: 2012Q1

REPORT INFORMATION
  Report Type: 
  Country: None (occurrence: None)
  Receive Date: 20120109
  Receipt Date: 20120104
  Transmission Date: 20120608
  Serious: No
  Sender: FDA-Public Use
  Company Number: US-PFIZER INC-2012003355

PATIENT
  Sex: Female
  Weight: 81.63 kg

DRUGS (9)
  1. CYMBALTA [Suspect]
     Indication: ANGER
     Dosage: 60 MG, DAILY
  2. FOLIC ACID [Concomitant]
     Dosage: 2 MG, DAILY
  3. ASPIRIN [Concomitant]
     Dosage: 81 MG, DAILY
  4. LIPITOR [Suspect]
     Indication: BLOOD CHOLESTEROL INCREASED
     Dosage: UNK
  5. LIPITOR [Suspect]
     Indication: BLOOD TRIGLYCERIDES INCREASED
  6. CYMBALTA [Suspect]
     Indication: AFFECTIVE DISORDER
     Dosage: 30 MG, 2X/DAY
  7. HYDRALAZINE [Concomitant]
     Indication: HYPERTENSION
     Dosage: 10 MG, 2X/DAY
  8. NORVASC [Concomitant]
     Indication: HYPERTENSION
     Dosage: 5 MG, 2X/DAY
  9. LASIX [Concomitant]
     Indication: SWELLING
     Dosage: 20 MG, AT NIGHT AS NEEDED

REACTIONS (6)
  - THERAPEUTIC RESPONSE UNEXPECTED [None]
  - WEIGHT DECREASED [None]
  - OEDEMA PERIPHERAL [None]
  - MUSCLE SPASMS [None]
  - BURN OESOPHAGEAL [None]
  - NEUROPATHY PERIPHERAL [None]
